FAERS Safety Report 8989393 (Version 2)
Quarter: 2013Q2

REPORT INFORMATION
  Report Type: Report from Study
  Country: DE (occurrence: DE)
  Receive Date: 20121228
  Receipt Date: 20130625
  Transmission Date: 20140414
  Serious: Yes (Life-Threatening, Hospitalization)
  Sender: FDA-Public Use
  Company Number: DE-TEVA-2009029831

PATIENT
  Age: 67 Year
  Sex: Male
  Weight: 108 kg

DRUGS (11)
  1. TREANDA [Suspect]
     Indication: MANTLE CELL LYMPHOMA
     Route: 042
     Dates: start: 20091201, end: 20091202
  2. RITUXIMAB [Suspect]
     Indication: MANTLE CELL LYMPHOMA
     Dosage: 750 MILLIGRAM DAILY;
     Dates: start: 20091130, end: 20091130
  3. TAMSULOSIN [Concomitant]
  4. AMLODIPIN [Concomitant]
  5. METOPROLOL [Concomitant]
  6. DELIX [Concomitant]
  7. TORASEMID [Concomitant]
  8. ALLOPURINOL [Concomitant]
     Dates: start: 20091122
  9. CO-TRIMOXAZOL [Concomitant]
     Dates: start: 20091130
  10. AMPHOTERICIN [Concomitant]
     Dates: start: 20091130
  11. PREDNISOLON [Concomitant]
     Dates: start: 20091203

REACTIONS (2)
  - Thrombocytopenia [Recovered/Resolved]
  - Epistaxis [Recovered/Resolved]
